FAERS Safety Report 21843769 (Version 3)
Quarter: 2023Q1

REPORT INFORMATION
  Report Type: Report from Study
  Country: IL (occurrence: IL)
  Receive Date: 20230110
  Receipt Date: 20230127
  Transmission Date: 20230417
  Serious: Yes (Hospitalization, Other)
  Sender: FDA-Public Use
  Company Number: IL-002147023-NVSC2023IL003673

PATIENT
  Age: 24 Year
  Sex: Male

DRUGS (4)
  1. TAFINLAR [Suspect]
     Active Substance: DABRAFENIB MESYLATE
     Indication: Malignant melanoma
     Dosage: 150 MG, BID (2X75 (150MG) IN THE MORNING AND AGAIN 2X75 (150MG) IN THE EVENING)
     Route: 048
     Dates: start: 20220824
  2. TAFINLAR [Suspect]
     Active Substance: DABRAFENIB MESYLATE
     Dosage: 150 MG, BID (2X75 (150MG) IN THE MORNING AND AGAIN 2X75 (150MG) IN THE EVENING)
     Route: 048
     Dates: start: 20230115
  3. MEKINIST [Suspect]
     Active Substance: TRAMETINIB DIMETHYL SULFOXIDE
     Indication: Malignant melanoma
     Dosage: 2 MG, QD
     Route: 048
     Dates: start: 20220824
  4. MEKINIST [Suspect]
     Active Substance: TRAMETINIB DIMETHYL SULFOXIDE
     Dosage: 2 MG, QD
     Route: 048
     Dates: start: 20230115

REACTIONS (2)
  - Metastases to central nervous system [Unknown]
  - Vomiting [Unknown]
